FAERS Safety Report 8187968-5 (Version None)
Quarter: 2012Q1

REPORT INFORMATION
  Report Type: 
  Country: None (occurrence: None)
  Receive Date: 20120306
  Receipt Date: 20120223
  Transmission Date: 20120608
  Serious: Yes (Hospitalization)
  Sender: FDA-Public Use
  Company Number: US-ELI_LILLY_AND_COMPANY-US201202007624

PATIENT
  Age: 42 Year
  Sex: Male
  Weight: 80.272 kg

DRUGS (3)
  1. REMODULIN [Concomitant]
     Indication: PULMONARY ARTERIAL HYPERTENSION
     Dosage: 46 DF, OTHER
     Dates: start: 20120201
  2. DIURETICS [Concomitant]
     Route: 042
  3. ADCIRCA [Suspect]
     Dosage: UNK, UNKNOWN
     Route: 065

REACTIONS (1)
  - RESPIRATORY DISTRESS [None]
